FAERS Safety Report 8595266-0 (Version None)
Quarter: 2012Q3

REPORT INFORMATION
  Report Type: 
  Country: None (occurrence: None)
  Receive Date: 20120815
  Receipt Date: 20120806
  Transmission Date: 20120928
  Serious: Yes (Hospitalization)
  Sender: FDA-Public Use
  Company Number: GB-ASTRAZENECA-2012SE48110

PATIENT
  Age: 24631 Day
  Sex: Male
  Weight: 98.7 kg

DRUGS (8)
  1. ZD6474 [Suspect]
     Indication: TRANSITIONAL CELL CARCINOMA
     Route: 048
     Dates: start: 20120516, end: 20120710
  2. FUMARATE [Concomitant]
     Dosage: 1 APP BD
     Route: 050
     Dates: start: 20120529
  3. LANSOPRAZOLE [Concomitant]
     Route: 048
     Dates: start: 20120522
  4. CHLORPHENIRAMINE TAB [Concomitant]
     Route: 048
     Dates: start: 20120529
  5. CARBOPLATIN [Suspect]
     Indication: TRANSITIONAL CELL CARCINOMA
     Dosage: 297 MG, 30 MIN IV INFUSION, ON DAY 1 OF EACH 21 DAY CYCLE
     Route: 042
     Dates: start: 20120516
  6. GEMCITABINE HYDROCHLORIDE [Suspect]
     Indication: TRANSITIONAL CELL CARCINOMA
     Dosage: 1100 MG, 30 MIN IV INFUSION, ON DAY 1 AND 8 OF EACH 21 DAY CYCLE
     Route: 042
     Dates: start: 20120516
  7. METOCLOPRAMIDE [Concomitant]
     Route: 048
     Dates: start: 20120516
  8. ACETAMINOPHEN AND CODEINE PHOSPHATE [Concomitant]
     Route: 048
     Dates: start: 20120616

REACTIONS (1)
  - VISCERAL ARTERIAL ISCHAEMIA [None]
